FAERS Safety Report 18768419 (Version 1)
Quarter: 2021Q1

REPORT INFORMATION
  Report Type: Spontaneous
  Country: US (occurrence: US)
  Receive Date: 20210121
  Receipt Date: 20210121
  Transmission Date: 20210419
  Serious: No
  Sender: FDA-Public Use
  Company Number: None

PATIENT
  Age: 59 Year
  Sex: Male
  Weight: 171 kg

DRUGS (2)
  1. CASIRIVIMAB/IMDEVIMAB [Suspect]
     Active Substance: CASIRIVIMAB\IMDEVIMAB
     Indication: COVID-19
     Dosage: ?          OTHER FREQUENCY:ONCE;?
     Route: 041
     Dates: start: 20210115, end: 20210115
  2. REGENERON [Concomitant]
     Active Substance: UNSPECIFIED INGREDIENT
     Dates: start: 20210115, end: 20210115

REACTIONS (6)
  - Fatigue [None]
  - Chest X-ray abnormal [None]
  - Off label use [None]
  - Oxygen saturation decreased [None]
  - COVID-19 pneumonia [None]
  - Hypoxia [None]

NARRATIVE: CASE EVENT DATE: 20210115
